FAERS Safety Report 16433947 (Version 3)
Quarter: 2019Q2

REPORT INFORMATION
  Report Type: Spontaneous
  Country: US (occurrence: US)
  Receive Date: 20190614
  Receipt Date: 20190626
  Transmission Date: 20190711
  Serious: Yes (Other)
  Sender: FDA-Public Use
  Company Number: US-ASTRAZENECA-2018SF25572

PATIENT
  Age: 17544 Day
  Sex: Male
  Weight: 79.4 kg

DRUGS (30)
  1. NEXIUM [Suspect]
     Active Substance: ESOMEPRAZOLE MAGNESIUM
     Indication: GASTROOESOPHAGEAL REFLUX DISEASE
     Route: 048
  2. NEXIUM [Suspect]
     Active Substance: ESOMEPRAZOLE MAGNESIUM
     Indication: GASTROOESOPHAGEAL REFLUX DISEASE
     Route: 048
     Dates: start: 201501, end: 201603
  3. ACETAMINOPHEN. [Concomitant]
     Active Substance: ACETAMINOPHEN
     Indication: PAIN
  4. VALSARTAN. [Concomitant]
     Active Substance: VALSARTAN
  5. DIAZEPAM. [Concomitant]
     Active Substance: DIAZEPAM
  6. FLUOCINONIDE. [Concomitant]
     Active Substance: FLUOCINONIDE
  7. BUDESONIDE. [Concomitant]
     Active Substance: BUDESONIDE
  8. VALSARTAN. [Concomitant]
     Active Substance: VALSARTAN
  9. OXYCODONE [Concomitant]
     Active Substance: OXYCODONE
  10. ATORVASTATIN [Concomitant]
     Active Substance: ATORVASTATIN
  11. MOVIPREP [Concomitant]
     Active Substance: ASCORBIC ACID\POLYETHYLENE GLYCOL 3350\POTASSIUM CHLORIDE\SODIUM ASCORBATE\SODIUM CHLORIDE\SODIUM SULFATE
  12. CHLORZOXAZONE. [Concomitant]
     Active Substance: CHLORZOXAZONE
  13. OXYCONTIN [Concomitant]
     Active Substance: OXYCODONE HYDROCHLORIDE
  14. RANITIDINE. [Concomitant]
     Active Substance: RANITIDINE
     Dates: start: 2012
  15. NEXIUM [Suspect]
     Active Substance: ESOMEPRAZOLE MAGNESIUM
     Indication: GASTROOESOPHAGEAL REFLUX DISEASE
     Route: 048
     Dates: start: 2010, end: 2016
  16. IBUPROFEN. [Concomitant]
     Active Substance: IBUPROFEN
  17. GABAPENTIN. [Concomitant]
     Active Substance: GABAPENTIN
  18. METHYLPREDNISOLONE. [Concomitant]
     Active Substance: METHYLPREDNISOLONE
  19. AMOXICILLIN. [Concomitant]
     Active Substance: AMOXICILLIN
  20. CARISOPRODOL. [Concomitant]
     Active Substance: CARISOPRODOL
  21. VITAMIN D [Concomitant]
     Active Substance: VITAMIN D NOS
  22. TAMIFLU [Concomitant]
     Active Substance: OSELTAMIVIR PHOSPHATE
  23. HYDROCHLOROTHIAZIDE. [Concomitant]
     Active Substance: HYDROCHLOROTHIAZIDE
  24. GLYCOPYRROLATE. [Concomitant]
     Active Substance: GLYCOPYRROLATE
  25. ENDOCET [Concomitant]
     Active Substance: ACETAMINOPHEN\OXYCODONE HYDROCHLORIDE
  26. CLONIDINE. [Concomitant]
     Active Substance: CLONIDINE
  27. OMEPRAZOLE. [Suspect]
     Active Substance: OMEPRAZOLE
     Indication: GASTROOESOPHAGEAL REFLUX DISEASE
     Route: 065
     Dates: start: 2010, end: 2016
  28. CIALIS [Concomitant]
     Active Substance: TADALAFIL
  29. OXYCODONE [Concomitant]
     Active Substance: OXYCODONE
     Indication: PAIN
  30. PANTOPRAZOLE [Suspect]
     Active Substance: PANTOPRAZOLE
     Indication: GASTROOESOPHAGEAL REFLUX DISEASE
     Route: 065
     Dates: start: 2010, end: 2016

REACTIONS (5)
  - End stage renal disease [Unknown]
  - Tubulointerstitial nephritis [Unknown]
  - Chronic kidney disease [Not Recovered/Not Resolved]
  - Renal failure [Unknown]
  - Acute kidney injury [Unknown]

NARRATIVE: CASE EVENT DATE: 20160322
